FAERS Safety Report 4471454-X (Version None)
Quarter: 2004Q4

REPORT INFORMATION
  Report Type: 
  Country: None (occurrence: None)
  Receive Date: 20041007
  Receipt Date: 20041004
  Transmission Date: 20050328
  Serious: Yes (Other)
  Sender: FDA-Public Use
  Company Number: 002857

PATIENT
  Age: 61 Year
  Sex: Female

DRUGS (4)
  1. MEDROXYPROGESTERONE ACETATE [Suspect]
     Dosage: ORAL
     Route: 048
     Dates: start: 19830101, end: 19950101
  2. PROVERA [Suspect]
     Dosage: ORAL
     Route: 048
     Dates: start: 19830101, end: 19950101
  3. PREMARIN [Suspect]
     Dosage: ORAL
     Route: 048
     Dates: start: 19830101, end: 19950101
  4. MEDROXYPROGESTERONE ACETATE [Suspect]
     Dosage: ORAL
     Route: 048
     Dates: start: 19950101, end: 20020101

REACTIONS (3)
  - BREAST CANCER [None]
  - CEREBROVASCULAR ACCIDENT [None]
  - THROMBOSIS [None]
